FAERS Safety Report 19048106 (Version 2)
Quarter: 2021Q2

REPORT INFORMATION
  Report Type: Spontaneous
  Country: US (occurrence: US)
  Receive Date: 20210323
  Receipt Date: 20210406
  Transmission Date: 20210717
  Serious: Yes (Hospitalization)
  Sender: FDA-Public Use
  Company Number: US-SA-2021SA098450

PATIENT
  Age: 65 Year
  Sex: Female

DRUGS (13)
  1. LINZESS [Concomitant]
     Active Substance: LINACLOTIDE
  2. XOLAIR [Concomitant]
     Active Substance: OMALIZUMAB
  3. NASONEX [Concomitant]
     Active Substance: MOMETASONE FUROATE
  4. DEXILANT [Concomitant]
     Active Substance: DEXLANSOPRAZOLE
  5. B?COMPLEX [VITAMIN B NOS] [Concomitant]
     Active Substance: VITAMINS
  6. ADVAIR HFA [Concomitant]
     Active Substance: FLUTICASONE PROPIONATE\SALMETEROL XINAFOATE
  7. CALCIUM [Concomitant]
     Active Substance: CALCIUM
  8. GLUCOSAMINE [Concomitant]
     Active Substance: GLUCOSAMINE
  9. VITAMIN D [VITAMIN D NOS] [Concomitant]
     Active Substance: VITAMIN D NOS
  10. DUPIXENT [Suspect]
     Active Substance: DUPILUMAB
     Indication: ASTHMA
     Dosage: 300 MG, QOW
     Route: 058
     Dates: start: 20210116
  11. ACCOLATE [Concomitant]
     Active Substance: ZAFIRLUKAST
  12. PRAVASTATIN. [Concomitant]
     Active Substance: PRAVASTATIN
  13. KALYDECO [Concomitant]
     Active Substance: IVACAFTOR

REACTIONS (3)
  - Constipation [Not Recovered/Not Resolved]
  - Dyspnoea [Recovered/Resolved]
  - Product use issue [Unknown]

NARRATIVE: CASE EVENT DATE: 20210121
